FAERS Safety Report 6640704-3 (Version None)
Quarter: 2010Q1

REPORT INFORMATION
  Report Type: 
  Country: None (occurrence: None)
  Receive Date: 20100318
  Receipt Date: 20100305
  Transmission Date: 20100710
  Serious: Yes (Hospitalization, Other)
  Sender: FDA-Public Use
  Company Number: US-ELI_LILLY_AND_COMPANY-US201001002917

PATIENT
  Sex: Male
  Weight: 104 kg

DRUGS (8)
  1. BYETTA [Suspect]
     Dosage: UNK, UNKNOWN
     Dates: start: 20060101, end: 20080601
  2. METFORMIN HYDROCHLORIDE [Concomitant]
     Indication: DIABETES MELLITUS
  3. HYDROCHLOROTHIAZIDE [Concomitant]
  4. ACCUPRIL [Concomitant]
  5. CARDIZEM [Concomitant]
  6. LIPITOR [Concomitant]
  7. TRICOR [Concomitant]
  8. MICARDIS [Concomitant]

REACTIONS (3)
  - DEHYDRATION [None]
  - PANCREATITIS ACUTE [None]
  - RENAL FAILURE [None]
